FAERS Safety Report 7952569-8 (Version None)
Quarter: 2011Q4

REPORT INFORMATION
  Report Type: 
  Country: None (occurrence: None)
  Receive Date: 20111201
  Receipt Date: 20111128
  Transmission Date: 20120403
  Serious: Yes (Other)
  Sender: FDA-Public Use
  Company Number: BE-ROCHE-1015839

PATIENT
  Sex: Female

DRUGS (15)
  1. FLUOROURACIL [Concomitant]
     Dates: start: 20110214, end: 20110426
  2. IRINOTECAN HCL [Concomitant]
     Dates: start: 20100705, end: 20101220
  3. AVASTIN [Suspect]
     Dates: start: 20110426, end: 20110509
  4. LEUCOVORIN CALCIUM [Concomitant]
     Dates: start: 20100705, end: 20101220
  5. LEUCOVORIN CALCIUM [Concomitant]
     Dates: start: 20110214, end: 20110426
  6. AVASTIN [Suspect]
     Dates: start: 20110704
  7. FLUOROURACIL [Concomitant]
     Dates: start: 20110606
  8. IRINOTECAN HCL [Concomitant]
     Dates: start: 20110606
  9. OXALIPLATIN [Concomitant]
     Dates: start: 20110426, end: 20110606
  10. AVASTIN [Suspect]
     Indication: RECTAL CANCER METASTATIC
     Route: 065
     Dates: start: 20100705, end: 20110228
  11. LEUCOVORIN CALCIUM [Concomitant]
     Dates: start: 20110606
  12. IRINOTECAN HCL [Concomitant]
     Dates: start: 20110214, end: 20110426
  13. FLUOROURACIL [Concomitant]
     Dates: start: 20100705, end: 20101220
  14. OXALIPLATIN [Concomitant]
     Dates: start: 20110704
  15. ERBITUX [Concomitant]
     Indication: RECTAL CANCER METASTATIC
     Dates: start: 20111024

REACTIONS (13)
  - NAUSEA [None]
  - DYSPEPSIA [None]
  - VOMITING [None]
  - PERIODONTITIS [None]
  - TOOTH EXTRACTION [None]
  - DECREASED APPETITE [None]
  - VENOUS THROMBOSIS [None]
  - WEIGHT DECREASED [None]
  - PAIN IN EXTREMITY [None]
  - ANAL FISSURE [None]
  - ERUCTATION [None]
  - ALOPECIA [None]
  - BACK PAIN [None]
